FAERS Safety Report 4715878-1 (Version None)
Quarter: 2005Q3

REPORT INFORMATION
  Report Type: 
  Country: None (occurrence: None)
  Receive Date: 20050713
  Receipt Date: 20050630
  Transmission Date: 20060218
  Serious: Yes (Disabling)
  Sender: FDA-Public Use
  Company Number: 214429

PATIENT
  Age: 88 Year
  Sex: Female

DRUGS (3)
  1. AVASTIN [Suspect]
     Indication: COLON CANCER
     Dosage: 5 MG/KG, Q3W, INTRAVENOUS
     Route: 042
     Dates: start: 20041101
  2. 5FU(FLUOROROUACIL) [Suspect]
     Indication: COLON CANCER
     Dates: start: 20041101
  3. LEUCOVORIN CALCIUM [Concomitant]

REACTIONS (10)
  - BALANCE DISORDER [None]
  - BLOOD GLUCOSE DECREASED [None]
  - CEREBRAL DISORDER [None]
  - FALL [None]
  - GAIT DISTURBANCE [None]
  - HYPONATRAEMIA [None]
  - LABORATORY TEST ABNORMAL [None]
  - LACUNAR INFARCTION [None]
  - RED BLOOD CELL COUNT DECREASED [None]
  - WHITE BLOOD CELL COUNT DECREASED [None]
